FAERS Safety Report 26207912 (Version 1)
Quarter: 2025Q4

REPORT INFORMATION
  Report Type: Spontaneous
  Country: US (occurrence: None)
  Receive Date: 20251224
  Receipt Date: 20251224
  Transmission Date: 20260118
  Serious: Yes (Death)
  Sender: FDA-CTU
  Company Number: None

PATIENT
  Age: 71 Year
  Sex: Female

DRUGS (1)
  1. TADALAFIL [Suspect]
     Active Substance: TADALAFIL
     Indication: Pulmonary arterial hypertension
     Dosage: 20MG QD ORAL
     Route: 048
     Dates: start: 20181224, end: 20251219

REACTIONS (7)
  - Fall [None]
  - Compression fracture [None]
  - Lung consolidation [None]
  - General physical health deterioration [None]
  - Cardiac failure [None]
  - Prerenal failure [None]
  - Cardiac arrest [None]

NARRATIVE: CASE EVENT DATE: 20251219
